FAERS Safety Report 7393522-5 (Version None)
Quarter: 2011Q2

REPORT INFORMATION
  Report Type: 
  Country: None (occurrence: None)
  Receive Date: 20110405
  Receipt Date: 20110324
  Transmission Date: 20111010
  Serious: Yes (Death, Other)
  Sender: FDA-Public Use
  Company Number: ES-RANBAXY-2011RR-43301

PATIENT
  Age: 33 Year
  Sex: Female

DRUGS (4)
  1. FLUCONAZOLE [Suspect]
  2. AMPHOTERICIN B [Concomitant]
  3. POSACONAZOLE [Suspect]
     Indication: ANTIFUNGAL PROPHYLAXIS
  4. TRETINOIN [Suspect]
     Indication: ACUTE PROMYELOCYTIC LEUKAEMIA
     Dosage: 45 MG/M2, UNK
     Route: 048

REACTIONS (3)
  - GASTROINTESTINAL TOXICITY [None]
  - HEPATOTOXICITY [None]
  - DRUG INTERACTION [None]
